FAERS Safety Report 23946700 (Version 1)
Quarter: 2024Q2

REPORT INFORMATION
  Report Type: Spontaneous
  Country: US (occurrence: US)
  Receive Date: 20240606
  Receipt Date: 20240606
  Transmission Date: 20240716
  Serious: No
  Sender: FDA-Public Use
  Company Number: US-PFIZER INC-PV202300169674

PATIENT
  Sex: Female

DRUGS (2)
  1. BUTORPHANOL TARTRATE [Suspect]
     Active Substance: BUTORPHANOL TARTRATE
     Indication: Migraine
     Dosage: FREQUENCY: WHENEVER WOULD HAVE BAD MIGRAINE, IF ONLY HAD 2 THEN WOULD ONLY USE 2
  2. HYDROCODONE [Concomitant]
     Active Substance: HYDROCODONE
     Indication: Migraine

REACTIONS (1)
  - Nausea [Unknown]
